FAERS Safety Report 21919165 (Version 1)
Quarter: 2023Q1

REPORT INFORMATION
  Report Type: Spontaneous
  Country: US (occurrence: None)
  Receive Date: 20230126
  Receipt Date: 20230126
  Transmission Date: 20230417
  Serious: Yes (Disabling, Other)
  Sender: FDA-Public Use
  Company Number: None

PATIENT
  Age: 64 Year
  Sex: Female
  Weight: 85.05 kg

DRUGS (9)
  1. GAMMAGARD LIQUID [Suspect]
     Active Substance: HUMAN IMMUNOGLOBULIN G
     Indication: Product substitution
     Dosage: OTHER QUANTITY : 40 GRAMS;?OTHER FREQUENCY : MONTHLY;?
     Route: 042
     Dates: start: 20230119, end: 20230119
  2. PROZAC [Concomitant]
     Active Substance: FLUOXETINE HYDROCHLORIDE
  3. HYDROXYZINE [Concomitant]
     Active Substance: HYDROXYZINE HYDROCHLORIDE
  4. GABAPENTIN [Concomitant]
     Active Substance: GABAPENTIN
  5. BACLOFEN [Concomitant]
     Active Substance: BACLOFEN
  6. ALEVE [Concomitant]
     Active Substance: NAPROXEN SODIUM
  7. TYLENOL [Concomitant]
     Active Substance: ACETAMINOPHEN
  8. CALCIUM\VITAMIN D [Concomitant]
     Active Substance: CALCIUM\VITAMIN D
  9. GAMUNEX-C [Concomitant]
     Active Substance: HUMAN IMMUNOGLOBULIN G

REACTIONS (11)
  - Back pain [None]
  - Chromaturia [None]
  - Dehydration [None]
  - Headache [None]
  - Nausea [None]
  - Dizziness [None]
  - Myalgia [None]
  - Fatigue [None]
  - Product substitution issue [None]
  - Therapeutic response changed [None]
  - Infusion related reaction [None]

NARRATIVE: CASE EVENT DATE: 20230119
